FAERS Safety Report 19686520 (Version 5)
Quarter: 2022Q2

REPORT INFORMATION
  Report Type: Report from Study
  Country: CA (occurrence: CA)
  Receive Date: 20210811
  Receipt Date: 20220603
  Transmission Date: 20220721
  Serious: Yes (Hospitalization, Other)
  Sender: FDA-Public Use
  Company Number: CA-JNJFOC-20210416646

PATIENT
  Age: 43 Year
  Sex: Female
  Weight: 99.880 kg

DRUGS (2)
  1. REMICADE [Suspect]
     Active Substance: INFLIXIMAB
     Indication: Crohn^s disease
     Dosage: ON 08-APR-2021, THE PATIENT RECEIVED 114TH INFLIXIMAB INFUSION OF 900 MG. PARTIAL HARVEY-BRADSHAW CO
     Route: 042
     Dates: start: 20080806
  2. REMICADE [Suspect]
     Active Substance: INFLIXIMAB
     Dosage: EXPIRY DATE: JUL-2024.?ON 01-JUN-2022, THE PATIENT RECEIVED 128 TH INFLIXIMAB INFUSION OF 900 MG. PA
     Route: 042
     Dates: start: 20080806

REACTIONS (13)
  - Ureteral stent insertion [Recovered/Resolved]
  - Syncope [Recovered/Resolved]
  - Dysphagia [Not Recovered/Not Resolved]
  - Fungal infection [Unknown]
  - Blood urine present [Not Recovered/Not Resolved]
  - Pallor [Unknown]
  - Malaise [Not Recovered/Not Resolved]
  - Abdominal pain [Unknown]
  - General physical health deterioration [Unknown]
  - Back pain [Not Recovered/Not Resolved]
  - Diarrhoea [Unknown]
  - Frequent bowel movements [Unknown]
  - Arthralgia [Unknown]

NARRATIVE: CASE EVENT DATE: 20210101
